FAERS Safety Report 6526797-2 (Version None)
Quarter: 2010Q1

REPORT INFORMATION
  Report Type: 
  Country: None (occurrence: None)
  Receive Date: 20100104
  Receipt Date: 20100104
  Transmission Date: 20100710
  Serious: Yes (Hospitalization)
  Sender: FDA-Public Use
  Company Number: None

PATIENT
  Sex: Female
  Weight: 61.2356 kg

DRUGS (2)
  1. ACTONEL [Suspect]
     Indication: OSTEOPENIA
     Dosage: 150MG USED FOR 1ST TIME
     Dates: start: 20090908
  2. ACTONEL [Suspect]
     Indication: OSTEOPOROSIS
     Dosage: 150MG USED FOR 1ST TIME
     Dates: start: 20090908

REACTIONS (6)
  - ABDOMINAL DISCOMFORT [None]
  - ARTHRALGIA [None]
  - CHEST DISCOMFORT [None]
  - FLATULENCE [None]
  - MOVEMENT DISORDER [None]
  - MUSCLE SPASMS [None]
